FAERS Safety Report 7800736-6 (Version None)
Quarter: 2011Q4

REPORT INFORMATION
  Report Type: 
  Country: None (occurrence: None)
  Receive Date: 20111006
  Receipt Date: 20110923
  Transmission Date: 20120403
  Serious: Yes (Hospitalization)
  Sender: FDA-Public Use
  Company Number: PHHY2011FR85074

PATIENT
  Age: 73 Year
  Sex: Female

DRUGS (11)
  1. ESOMEPRAZOLE SODIUM [Concomitant]
     Dosage: UNK UKN, UNK
  2. CALCIDIA [Concomitant]
     Dosage: UNK UKN, UNK
  3. MYCOPHENOLATE MOFETIL (CELLCEPT) [Suspect]
     Indication: PROPHYLAXIS AGAINST TRANSPLANT REJECTION
     Dosage: 500 MG, BID
     Dates: start: 20070101
  4. ATORVASTATIN CALCIUM [Concomitant]
     Dosage: UNK UKN, UNK
  5. MEPROBAMATE [Concomitant]
     Dosage: UNK UKN, UNK
  6. ASPIRIN [Concomitant]
     Dosage: UNK UKN, UNK
  7. MORPHINE SULFATE [Concomitant]
     Dosage: UNK UKN, UNK
  8. NEORAL [Suspect]
     Indication: PROPHYLAXIS AGAINST TRANSPLANT REJECTION
     Dosage: 500 MG, BID
     Dates: start: 20070101
  9. ZYPREXA [Concomitant]
     Dosage: UNK UKN, UNK
  10. LEVOTHYROXINE SODIUM [Concomitant]
     Dosage: UNK UKN, UNK
  11. ANAFRANIL [Concomitant]
     Dosage: UNK UKN, UNK

REACTIONS (11)
  - TUMOUR MARKER INCREASED [None]
  - ASCITES [None]
  - MALIGNANT PERITONEAL NEOPLASM [None]
  - DILATATION INTRAHEPATIC DUCT ACQUIRED [None]
  - DIARRHOEA [None]
  - NIGHT SWEATS [None]
  - DECREASED APPETITE [None]
  - ADENOCARCINOMA [None]
  - HEPATIC CYST [None]
  - ABDOMINAL PAIN [None]
  - ABDOMINAL DISTENSION [None]
